FAERS Safety Report 7213246-4 (Version None)
Quarter: 2011Q1

REPORT INFORMATION
  Report Type: 
  Country: None (occurrence: None)
  Receive Date: 20110106
  Receipt Date: 20101216
  Transmission Date: 20110831
  Serious: Yes (Other)
  Sender: FDA-Public Use
  Company Number: US-BAYER-201032564NA

PATIENT
  Sex: Female

DRUGS (5)
  1. PREVACID [Concomitant]
     Dosage: 30 MG, QD
     Route: 048
  2. YASMIN [Suspect]
     Indication: PRODUCT USED FOR UNKNOWN INDICATION
     Dates: start: 20070301, end: 20090601
  3. YAZ [Suspect]
     Indication: PRODUCT USED FOR UNKNOWN INDICATION
     Dates: start: 20070301, end: 20090601
  4. PROMETHAZINE [Suspect]
     Route: 048
  5. PROMETHEGAN [Concomitant]
     Route: 054

REACTIONS (1)
  - CHOLECYSTECTOMY [None]
